FAERS Safety Report 10762914 (Version 1)
Quarter: 2015Q1

REPORT INFORMATION
  Report Type: Spontaneous
  Country: US (occurrence: US)
  Receive Date: 20150204
  Receipt Date: 20150204
  Transmission Date: 20150721
  Serious: Yes (Hospitalization, Other)
  Sender: FDA-Public Use
  Company Number: US-ACTAVIS-2015-01126

PATIENT
  Age: 9 Year
  Sex: Female

DRUGS (1)
  1. RISPERIDONE (WATSON LABORATORIES) [Suspect]
     Active Substance: RISPERIDONE
     Indication: PSYCHOTIC DISORDER
     Dosage: 1.75 MG, DAILY:0.5MG BIC AND 0.75MG AT BEDTIME
     Route: 065

REACTIONS (2)
  - Precocious puberty [Unknown]
  - Blood prolactin increased [Unknown]
